FAERS Safety Report 6296379-9 (Version None)
Quarter: 2009Q3

REPORT INFORMATION
  Report Type: 
  Country: None (occurrence: None)
  Receive Date: 20090804
  Receipt Date: 20090722
  Transmission Date: 20100115
  Serious: Yes (Other)
  Sender: FDA-Public Use
  Company Number: JP-ROCHE-634618

PATIENT
  Sex: Male

DRUGS (1)
  1. DIAZEPAM [Suspect]
     Indication: SEDATION
     Dosage: ROUTE REPORTED AS IV NOS
     Route: 042
     Dates: start: 20090425, end: 20090425

REACTIONS (2)
  - INJECTION SITE DERMATITIS [None]
  - NEUROPATHY PERIPHERAL [None]
